FAERS Safety Report 25990736 (Version 1)
Quarter: 2025Q4

REPORT INFORMATION
  Report Type: Spontaneous
  Country: US (occurrence: US)
  Receive Date: 20251103
  Receipt Date: 20251103
  Transmission Date: 20260117
  Serious: No
  Sender: MYLAN
  Company Number: US-MYLANLABS-2025M1086773

PATIENT
  Age: 50 Year
  Sex: Male

DRUGS (4)
  1. BREYNA [Suspect]
     Active Substance: BUDESONIDE\FORMOTEROL FUMARATE
     Indication: Asthma
     Dosage: 640 MICROGRAM, QD (4 PUFFS PER DAY)
     Dates: start: 20250929, end: 20251002
  2. BREYNA [Suspect]
     Active Substance: BUDESONIDE\FORMOTEROL FUMARATE
     Dosage: 640 MICROGRAM, QD (4 PUFFS PER DAY)
     Route: 055
     Dates: start: 20250929, end: 20251002
  3. BREYNA [Suspect]
     Active Substance: BUDESONIDE\FORMOTEROL FUMARATE
     Dosage: 640 MICROGRAM, QD (4 PUFFS PER DAY)
     Route: 055
     Dates: start: 20250929, end: 20251002
  4. BREYNA [Suspect]
     Active Substance: BUDESONIDE\FORMOTEROL FUMARATE
     Dosage: 640 MICROGRAM, QD (4 PUFFS PER DAY)
     Dates: start: 20250929, end: 20251002

REACTIONS (3)
  - Incorrect dose administered by device [Unknown]
  - Wrong technique in device usage process [Unknown]
  - Device malfunction [Unknown]

NARRATIVE: CASE EVENT DATE: 20250929
